FAERS Safety Report 23770640 (Version 5)
Quarter: 2024Q3

REPORT INFORMATION
  Report Type: Report from Study
  Country: JP (occurrence: JP)
  Receive Date: 20240422
  Receipt Date: 20240710
  Transmission Date: 20241017
  Serious: Yes (Other)
  Sender: AMGEN
  Company Number: JP-Vifor (International) Inc.-VIT-2023-03119

PATIENT
  Age: 75 Year
  Sex: Female

DRUGS (7)
  1. AVACOPAN [Suspect]
     Active Substance: AVACOPAN
     Indication: Anti-neutrophil cytoplasmic antibody positive vasculitis
     Dosage: UNK
     Route: 048
     Dates: start: 20220701, end: 202207
  2. AVACOPAN [Suspect]
     Active Substance: AVACOPAN
     Indication: Microscopic polyangiitis
     Dosage: UNK
     Route: 048
     Dates: start: 202207
  3. PREDNISOLONE [Concomitant]
     Active Substance: PREDNISOLONE
     Indication: Microscopic polyangiitis
     Dosage: UNK
     Route: 065
     Dates: start: 20220701
  4. MIZORIBINE [Concomitant]
     Active Substance: MIZORIBINE
     Indication: Microscopic polyangiitis
     Dosage: PERORAL MEDICINE
     Route: 048
     Dates: start: 20220701
  5. CELLCEPT [Concomitant]
     Active Substance: MYCOPHENOLATE MOFETIL
     Indication: Microscopic polyangiitis
     Dosage: PERORAL MEDICINE
     Route: 048
     Dates: start: 20220701
  6. SULFAMETHOXAZOLE\TRIMETHOPRIM [Concomitant]
     Active Substance: SULFAMETHOXAZOLE\TRIMETHOPRIM
     Indication: Microscopic polyangiitis
     Dosage: UNK
     Route: 048
  7. ITRACONAZOLE [Concomitant]
     Active Substance: ITRACONAZOLE
     Indication: Microscopic polyangiitis
     Dosage: PERORAL MEDICINE
     Route: 048

REACTIONS (5)
  - Pyelonephritis [Unknown]
  - COVID-19 [Unknown]
  - Diarrhoea [Recovering/Resolving]
  - Intentional product misuse [Unknown]
  - Underdose [Unknown]

NARRATIVE: CASE EVENT DATE: 20220701
